FAERS Safety Report 11698924 (Version 1)
Quarter: 2015Q4

REPORT INFORMATION
  Report Type: Spontaneous
  Country: US (occurrence: US)
  Receive Date: 20151104
  Receipt Date: 20151104
  Transmission Date: 20160304
  Serious: No
  Sender: FDA-Public Use
  Company Number: GXBR2015US002040

PATIENT
  Age: 65 Year
  Sex: Female
  Weight: 69.39 kg

DRUGS (8)
  1. PREDNISONE. [Concomitant]
     Active Substance: PREDNISONE
     Dosage: 5 MG, QD
     Route: 048
  2. MULTI-VIT [Concomitant]
     Active Substance: VITAMINS
     Dosage: 1 DF, QD
     Route: 048
  3. PLAQUENIL [Concomitant]
     Active Substance: HYDROXYCHLOROQUINE SULFATE
     Dosage: UNK DF, UNK
     Route: 048
  4. NEXIUM I.V. [Concomitant]
     Active Substance: ESOMEPRAZOLE SODIUM
     Indication: GASTROOESOPHAGEAL REFLUX DISEASE
     Dosage: 1 TABLET, QD
     Route: 048
  5. NITRO-BID [Suspect]
     Active Substance: NITROGLYCERIN
     Indication: RAYNAUD^S PHENOMENON
     Dosage: UNK DF, UNK
     Route: 061
     Dates: start: 201412
  6. NIFEDIPINE. [Concomitant]
     Active Substance: NIFEDIPINE
     Indication: PROMOTION OF PERIPHERAL CIRCULATION
     Dosage: UNK DF, UNK
     Route: 048
  7. PLETAL [Concomitant]
     Active Substance: CILOSTAZOL
     Indication: SCLERODERMA
     Dosage: UNK DF, UNK
     Route: 048
     Dates: start: 2000
  8. NITRO-BID [Suspect]
     Active Substance: NITROGLYCERIN
     Indication: PROMOTION OF PERIPHERAL CIRCULATION

REACTIONS (2)
  - Skin exfoliation [Not Recovered/Not Resolved]
  - Off label use [Not Recovered/Not Resolved]

NARRATIVE: CASE EVENT DATE: 201504
